FAERS Safety Report 8996706 (Version 1)
Quarter: 2012Q4

REPORT INFORMATION
  Report Type: Spontaneous
  Country: US (occurrence: None)
  Receive Date: 20121228
  Receipt Date: 20121228
  Transmission Date: 20130627
  Serious: No
  Sender: FDA-Public Use
  Company Number: None

PATIENT
  Sex: Female

DRUGS (3)
  1. KLONOPIN [Suspect]
     Indication: OBSESSIVE-COMPULSIVE DISORDER
  2. KLONOPIN [Suspect]
     Indication: PANIC REACTION
  3. KLONOPIN [Suspect]
     Indication: ANTICIPATORY ANXIETY

REACTIONS (1)
  - Drug ineffective [None]
